FAERS Safety Report 13206577 (Version 1)
Quarter: 2017Q1

REPORT INFORMATION
  Report Type: Spontaneous
  Country: US (occurrence: US)
  Receive Date: 20170208
  Receipt Date: 20170208
  Transmission Date: 20170428
  Serious: No
  Sender: FDA-Public Use
  Company Number: None

PATIENT
  Age: 52 Year
  Sex: Male

DRUGS (1)
  1. HUMIRA [Suspect]
     Active Substance: ADALIMUMAB
     Indication: PRODUCT USED FOR UNKNOWN INDICATION
     Dosage: VARIABLE  80 MG ON DAY 1, 40 MG ON DAY 8, THEN 40 MG EVERY OTHER WEEK SUBCUTANEOUS
     Route: 058
     Dates: start: 20161230

REACTIONS (2)
  - Oropharyngeal pain [None]
  - Sneezing [None]

NARRATIVE: CASE EVENT DATE: 20170201
